FAERS Safety Report 15123969 (Version 3)
Quarter: 2018Q3

REPORT INFORMATION
  Report Type: Report from Study
  Country: DE (occurrence: DE)
  Receive Date: 20180710
  Receipt Date: 20180816
  Transmission Date: 20181010
  Serious: Yes (Hospitalization)
  Sender: FDA-Public Use
  Company Number: DE-TEVA-2018-DE-922723

PATIENT
  Age: 79 Year
  Sex: Male
  Weight: 59 kg

DRUGS (16)
  1. REVLIMID [Suspect]
     Active Substance: LENALIDOMIDE
     Route: 048
     Dates: start: 20161208, end: 20161229
  2. ZOMETA [Concomitant]
     Active Substance: ZOLEDRONIC ACID
     Indication: BONE PAIN
     Dosage: DAILY DOSE: 4 MG MILLIGRAM(S) EVERY MONTH
     Route: 041
     Dates: start: 20160504
  3. ACICLOVIR RATIOPHARM [Concomitant]
     Indication: PROPHYLAXIS
     Dosage: 400 MILLIGRAM DAILY; 800 MILLIGRAM
     Route: 048
     Dates: start: 20160511
  4. REVLIMID [Suspect]
     Active Substance: LENALIDOMIDE
     Route: 048
     Dates: start: 20170110, end: 20170205
  5. CALCIUM [Concomitant]
     Active Substance: CALCIUM
     Indication: PROPHYLAXIS
     Dosage: 500 MILLIGRAM DAILY; DAILY DOSE: 500 MG MILLIGRAM(S) EVERY DAY
     Route: 048
     Dates: start: 20160511
  6. REVLIMID [Suspect]
     Active Substance: LENALIDOMIDE
     Route: 048
     Dates: start: 20161208, end: 20161228
  7. PANTOPRAZOL HENNIG [Concomitant]
     Indication: PROPHYLAXIS
     Dosage: 20 MILLIGRAM DAILY; DAILY DOSE: 20 MG MILLIGRAM(S) EVERY DAY
     Route: 048
     Dates: start: 20160317
  8. REVLIMID [Suspect]
     Active Substance: LENALIDOMIDE
     Route: 048
     Dates: start: 20160511, end: 20160522
  9. REVLIMID [Suspect]
     Active Substance: LENALIDOMIDE
     Indication: PLASMA CELL MYELOMA
     Route: 048
     Dates: start: 20160608, end: 20161201
  10. ASA [Concomitant]
     Active Substance: ASPIRIN
     Indication: PROPHYLAXIS
     Dosage: 100 MILLIGRAM DAILY; DAILY DOSE: 100 MG MILLIGRAM(S) EVERY DAY
     Route: 048
     Dates: start: 20160511
  11. VITAMIN D3?HEVERT [Concomitant]
     Indication: PROPHYLAXIS
     Dosage: 400 IU (INTERNATIONAL UNIT) DAILY; DAILY DOSE: 400 IU INTERNATIONAL UNIT(S) EVERY DAY
     Route: 048
     Dates: start: 20160511
  12. DEXAMETHASONE. [Suspect]
     Active Substance: DEXAMETHASONE
     Indication: PLASMA CELL MYELOMA
     Route: 065
     Dates: start: 20160511
  13. DEXAMETHASONE. [Suspect]
     Active Substance: DEXAMETHASONE
     Route: 065
     Dates: start: 20161208, end: 20161228
  14. TILIDIN [Concomitant]
     Active Substance: NALOXONE HYDROCHLORIDE\TILIDINE HYDROCHLORIDE
     Indication: BONE PAIN
     Dosage: 20 MILLIGRAM DAILY; DAILY DOSE: 20 MG MILLIGRAM(S) EVERY DAY
     Route: 048
     Dates: start: 20160317
  15. NOVALGIN (METAMIZOLE SODIUM) [Concomitant]
     Active Substance: METAMIZOLE SODIUM
     Indication: BONE PAIN
     Dosage: 500 MILLIGRAM DAILY; 2000 MILLIGRAM
     Route: 048
     Dates: start: 20160317
  16. MOVICOL [Concomitant]
     Active Substance: POLYETHYLENE GLYCOL 3350\POTASSIUM CHLORIDE\SODIUM BICARBONATE\SODIUM CHLORIDE
     Indication: PROPHYLAXIS
     Route: 048
     Dates: start: 20160317

REACTIONS (3)
  - Iron deficiency anaemia [Recovered/Resolved]
  - Anaemia [Unknown]
  - Anaemia [Recovered/Resolved]

NARRATIVE: CASE EVENT DATE: 20161206
